FAERS Safety Report 8991409 (Version 1)
Quarter: 2012Q4

REPORT INFORMATION
  Report Type: 
  Country: IN (occurrence: IN)
  Receive Date: 20121229
  Receipt Date: 20121229
  Transmission Date: 20130627
  Serious: Yes (Death)
  Sender: FDA-Public Use
  Company Number: IN-009507513-1212IND011066

PATIENT
  Age: 59 Year

DRUGS (2)
  1. JANUMET [Suspect]
     Dosage: UNK
     Route: 048
  2. INSULIN [Concomitant]

REACTIONS (2)
  - Death [Fatal]
  - Hypoglycaemia [Unknown]
